FAERS Safety Report 7774635-2 (Version None)
Quarter: 2011Q3

REPORT INFORMATION
  Report Type: 
  Country: None (occurrence: None)
  Receive Date: 20110923
  Receipt Date: 20110921
  Transmission Date: 20111222
  Serious: Yes (Hospitalization, Other)
  Sender: FDA-Public Use
  Company Number: IL-ROCHE-803874

PATIENT
  Age: 50 Year
  Sex: Female

DRUGS (8)
  1. BEVACIZUMAB [Suspect]
     Indication: GLIOBLASTOMA
     Route: 065
     Dates: start: 20080206, end: 20090118
  2. ESCITALOPRAM [Concomitant]
     Indication: DEPRESSION
  3. DEXAMETHASONE [Concomitant]
  4. IRINOTECAN HCL [Suspect]
     Indication: GLIOBLASTOMA
     Route: 065
     Dates: start: 20080206, end: 20090118
  5. TEMODAL [Concomitant]
  6. LAMICTAL [Concomitant]
  7. VALPROATE SODIUM [Concomitant]
  8. ZOFRAN [Concomitant]

REACTIONS (7)
  - PROTEINURIA [None]
  - DIARRHOEA [None]
  - HEADACHE [None]
  - VOMITING [None]
  - OSTEONECROSIS [None]
  - FEBRILE NEUTROPENIA [None]
  - HYPERTENSION [None]
